FAERS Safety Report 5062444-7 (Version None)
Quarter: 2006Q3

REPORT INFORMATION
  Report Type: 
  Country: None (occurrence: None)
  Receive Date: 20060721
  Receipt Date: 20060705
  Transmission Date: 20061208
  Serious: Yes (Hospitalization)
  Sender: FDA-Public Use
  Company Number: JP200603007177

PATIENT
  Age: 58 Year
  Sex: Female
  Weight: 53 kg

DRUGS (7)
  1. GEMZAR [Suspect]
     Indication: COLON CANCER RECURRENT
     Dosage: 1200 MG, UNK, INTRAVENOUS
     Route: 042
     Dates: start: 20041124, end: 20041208
  2. MTX (METHOTREXATE SODIUM) INJECTION [Concomitant]
  3. 5-FU (FLUOROURACIL) INJECTION [Concomitant]
  4. DIAMOX FOR INJECTION (ACETAZOLAMIDE SODIUM) [Concomitant]
  5. KYTRIL (GRANISETRON) INJECTION [Concomitant]
  6. DECADRON [Concomitant]
  7. MEYLON (SODIUM BICARBONATE) INJECTION [Concomitant]

REACTIONS (1)
  - EOSINOPHILIC PNEUMONIA [None]
